FAERS Safety Report 5499437-1 (Version None)
Quarter: 2007Q4

REPORT INFORMATION
  Report Type: 
  Country: None (occurrence: None)
  Receive Date: 20071026
  Receipt Date: 20071022
  Transmission Date: 20080405
  Serious: Yes (Other)
  Sender: FDA-Public Use
  Company Number: PHEH2007US12896

PATIENT
  Age: 60 Year
  Sex: Male
  Weight: 83.446 kg

DRUGS (1)
  1. LAMISIL [Suspect]
     Indication: ONYCHOMYCOSIS
     Dosage: 250 MG, QHS
     Route: 048
     Dates: start: 20070819

REACTIONS (2)
  - HEADACHE [None]
  - THROAT TIGHTNESS [None]
